FAERS Safety Report 7324264-X (Version None)
Quarter: 2011Q1

REPORT INFORMATION
  Report Type: 
  Country: None (occurrence: None)
  Receive Date: 20110301
  Receipt Date: 20110221
  Transmission Date: 20110831
  Serious: Yes (Hospitalization)
  Sender: FDA-Public Use
  Company Number: JP-AMGEN-JPNCT2011011382

PATIENT
  Age: 73 Year
  Sex: Male

DRUGS (5)
  1. FLUOROURACIL [Concomitant]
     Indication: COLORECTAL CANCER
     Dosage: UNK
     Route: 040
     Dates: start: 20101020
  2. PANITUMUMAB [Suspect]
     Indication: COLORECTAL CANCER
     Dosage: UNK, Q2WK
     Route: 041
     Dates: start: 20101020
  3. CALCIUM LEVOFOLINATE [Concomitant]
     Indication: COLORECTAL CANCER
     Dosage: UNK
     Route: 041
     Dates: start: 20101020
  4. OXALIPLATIN [Concomitant]
     Indication: COLORECTAL CANCER
     Route: 041
     Dates: start: 20101020
  5. FLUOROURACIL [Concomitant]
     Dosage: UNK
     Route: 041
     Dates: start: 20101020

REACTIONS (2)
  - PNEUMONIA [None]
  - DERMATITIS [None]
